FAERS Safety Report 6505093-3 (Version None)
Quarter: 2009Q4

REPORT INFORMATION
  Report Type: 
  Country: None (occurrence: None)
  Receive Date: 20091201
  Receipt Date: 20090108
  Transmission Date: 20100525
  Serious: Yes (Hospitalization, Other)
  Sender: FDA-Public Use
  Company Number: 2008-178648-NL

PATIENT
  Age: 23 Year
  Sex: Female
  Weight: 49.9 kg

DRUGS (5)
  1. NUVARING [Suspect]
     Indication: DRUG USE FOR UNKNOWN INDICATION
     Dates: start: 20070501, end: 20071015
  2. ULTRACET [Concomitant]
  3. PREDNISONE [Concomitant]
  4. HYDROCODONE BITARTRATE [Concomitant]
  5. ETODOLAC [Concomitant]

REACTIONS (1)
  - DEEP VEIN THROMBOSIS [None]
